FAERS Safety Report 20187332 (Version 1)
Quarter: 2021Q4

REPORT INFORMATION
  Report Type: Spontaneous
  Country: US (occurrence: None)
  Receive Date: 20211214
  Receipt Date: 20211214
  Transmission Date: 20220303
  Serious: Yes (Hospitalization, Other)
  Sender: FDA-Public Use
  Company Number: None

PATIENT
  Age: 69 Year
  Sex: Female
  Weight: 63.45 kg

DRUGS (2)
  1. REGEN-COV [Suspect]
     Active Substance: CASIRIVIMAB\IMDEVIMAB
     Indication: SARS-CoV-2 antibody test positive
     Dosage: FREQUENCY : ONCE;?
     Route: 058
     Dates: start: 20211213, end: 20211213
  2. AMLODIPINE [Concomitant]
     Active Substance: AMLODIPINE BESYLATE

REACTIONS (5)
  - Headache [None]
  - Dyspnoea [None]
  - Dyspnoea [None]
  - Heart rate decreased [None]
  - Blood pressure decreased [None]

NARRATIVE: CASE EVENT DATE: 20211214
